FAERS Safety Report 23584605 (Version 1)
Quarter: 2024Q1

REPORT INFORMATION
  Report Type: Spontaneous
  Country: US (occurrence: US)
  Receive Date: 20240301
  Receipt Date: 20240301
  Transmission Date: 20240409
  Serious: No
  Sender: FDA-Public Use
  Company Number: US-AUROBINDO-AUR-APL-2023-076967

PATIENT
  Age: 60 Year
  Sex: Female
  Weight: 48 kg

DRUGS (2)
  1. DORZOLAMIDE HYDROCHLORIDE\TIMOLOL MALEATE [Suspect]
     Active Substance: DORZOLAMIDE HYDROCHLORIDE\TIMOLOL MALEATE
     Indication: Glaucoma
     Dosage: 1 DROP, TWO TIMES A DAY, IN BOTH EYES
     Route: 047
  2. SYNTHROID [Concomitant]
     Active Substance: LEVOTHYROXINE SODIUM
     Indication: Product used for unknown indication
     Dosage: UNK 0.75 (UNITS UNSPECIFIED)
     Route: 065

REACTIONS (5)
  - Drug dose omission by device [Unknown]
  - Product substitution issue [Unknown]
  - Device use issue [Unknown]
  - Device defective [Unknown]
  - Device occlusion [Unknown]

NARRATIVE: CASE EVENT DATE: 20231128
